FAERS Safety Report 10143318 (Version 2)
Quarter: 2014Q2

REPORT INFORMATION
  Report Type: Report from Study
  Country: US (occurrence: US)
  Receive Date: 20140430
  Receipt Date: 20140507
  Transmission Date: 20141212
  Serious: Yes (Hospitalization)
  Sender: FDA-Public Use
  Company Number: PHHO2014US005981

PATIENT
  Age: 77 Year
  Sex: Male
  Weight: 72.4 kg

DRUGS (15)
  1. LBH589 [Suspect]
     Indication: PLASMA CELL MYELOMA RECURRENT
     Dosage: 20 MG, QD (DAILY ON DAYS 1, 3, 5, 15, 17, 19, Q28 DAYS)
     Route: 048
     Dates: start: 20140224, end: 20140324
  2. LBH589 [Suspect]
     Indication: DIFFUSE LARGE B-CELL LYMPHOMA
  3. AFINITOR [Suspect]
     Indication: PLASMA CELL MYELOMA RECURRENT
     Dosage: 5 MG, QD
     Route: 048
     Dates: start: 20140224, end: 20140324
  4. AFINITOR [Suspect]
     Indication: DIFFUSE LARGE B-CELL LYMPHOMA
  5. CARBIDOPA AND LEVODOPA [Concomitant]
     Dosage: 2 TABLETS, 25-100 MG EACH, EVERY EVENING
     Route: 048
  6. CARBIDOPA AND LEVODOPA [Concomitant]
     Dosage: 3 TABLETS, 25-100 MG EACH, 3 IN AM AND 3 IN AFTERNOON
     Route: 048
  7. TEMOVATE [Concomitant]
     Dosage: 0.05% OINTMENT, BID
     Route: 061
  8. COSOPT [Concomitant]
     Dosage: 1 DROP (0.5% DROPS) IN RIGHT EYE, BID
     Route: 047
  9. NIZORAL [Concomitant]
     Dosage: 2% SHAMPOO TOPICALLY, TWICE A WEEK FOR 4 WEEKS, THEN INTERMITTENTLY
     Route: 061
  10. XALATAN [Concomitant]
     Dosage: 1 DROP (0.005%) IN RIGHT EYE, EVERY BEDTIME
     Route: 047
  11. METROCREAM [Concomitant]
     Dosage: 0.75% CREAM, APPLY TO FACE, BID
     Route: 061
  12. MULTI-VIT [Concomitant]
     Dosage: 1 DF (CAPSULE), QD
     Route: 048
  13. REFRESH PLUS [Concomitant]
     Dosage: 1 DROP (0.5%) IN BOTH EYES, BID
     Route: 047
  14. SIMVASTATIN [Concomitant]
     Dosage: 0.5 DF (10 MG TABLET), QD
     Route: 048
  15. TRIAMTERENE AND HYDROCHLOROTHIAZIDE [Concomitant]

REACTIONS (2)
  - Syncope [Recovered/Resolved]
  - Fatigue [Not Recovered/Not Resolved]
